FAERS Safety Report 20861751 (Version 1)
Quarter: 2022Q2

REPORT INFORMATION
  Report Type: Report from Study
  Country: GB (occurrence: None)
  Receive Date: 20220523
  Receipt Date: 20220523
  Transmission Date: 20220721
  Serious: Yes (Hospitalization)
  Sender: FDA-Public Use
  Company Number: 2022A175511

PATIENT
  Age: 72 Year
  Sex: Female

DRUGS (11)
  1. DAPAGLIFLOZIN [Suspect]
     Active Substance: DAPAGLIFLOZIN
     Indication: Diabetes mellitus
     Route: 048
     Dates: start: 20220411
  2. DAPAGLIFLOZIN [Suspect]
     Active Substance: DAPAGLIFLOZIN
     Indication: Cardiovascular disorder
     Route: 048
     Dates: start: 20220411
  3. OMEPRAZOLE [Concomitant]
     Active Substance: OMEPRAZOLE
  4. LEVOTHYROXINE [Concomitant]
     Active Substance: LEVOTHYROXINE
  5. ASPIRIN [Concomitant]
     Active Substance: ASPIRIN
  6. ATORVASTATIN [Concomitant]
     Active Substance: ATORVASTATIN
  7. FUROSEMIDE [Concomitant]
     Active Substance: FUROSEMIDE
  8. RAMIPRIL [Concomitant]
     Active Substance: RAMIPRIL
  9. EPILIM [Concomitant]
     Active Substance: VALPROATE SODIUM
  10. METFORMIN [Concomitant]
     Active Substance: METFORMIN HYDROCHLORIDE
  11. GLICLAZIDE [Concomitant]
     Active Substance: GLICLAZIDE

REACTIONS (11)
  - Hyperglycaemic hyperosmolar nonketotic syndrome [Not Recovered/Not Resolved]
  - Tachycardia [Not Recovered/Not Resolved]
  - Glomerular filtration rate decreased [Not Recovered/Not Resolved]
  - Hyperglycaemia [Recovered/Resolved]
  - Acute kidney injury [Unknown]
  - Hyponatraemia [Unknown]
  - Peripheral swelling [Recovering/Resolving]
  - Tremor [Unknown]
  - Fibrin D dimer increased [Recovering/Resolving]
  - Fluid intake reduced [Unknown]
  - Malaise [Unknown]

NARRATIVE: CASE EVENT DATE: 20220414
